FAERS Safety Report 13746985 (Version 2)
Quarter: 2017Q3

REPORT INFORMATION
  Report Type: Report from Study
  Country: US (occurrence: US)
  Receive Date: 20170712
  Receipt Date: 20170808
  Transmission Date: 20171127
  Serious: Yes (Hospitalization)
  Sender: FDA-Public Use
  Company Number: US-AMGEN-USASL2017063672

PATIENT
  Age: 79 Year
  Sex: Male

DRUGS (3)
  1. REPATHA [Suspect]
     Active Substance: EVOLOCUMAB
     Indication: BLOOD CHOLESTEROL INCREASED
  2. REPATHA [Suspect]
     Active Substance: EVOLOCUMAB
     Indication: HYPERCHOLESTEROLAEMIA
     Dosage: 140 MG, Q2WK
     Route: 065
     Dates: start: 201701
  3. REPATHA [Suspect]
     Active Substance: EVOLOCUMAB
     Indication: BLOOD CHOLESTEROL ABNORMAL

REACTIONS (11)
  - Wound infection staphylococcal [Unknown]
  - Cough [Not Recovered/Not Resolved]
  - Injection site bruising [Unknown]
  - Dry skin [Unknown]
  - Decreased immune responsiveness [Unknown]
  - Skin fissures [Unknown]
  - Arthralgia [Unknown]
  - Fall [Unknown]
  - Skin infection [Unknown]
  - Myalgia [Unknown]
  - Bursitis [Unknown]

NARRATIVE: CASE EVENT DATE: 2017
